FAERS Safety Report 5297794-2 (Version None)
Quarter: 2007Q2

REPORT INFORMATION
  Report Type: 
  Country: None (occurrence: None)
  Receive Date: 20070412
  Receipt Date: 20070412
  Transmission Date: 20071010
  Serious: Yes (Other)
  Sender: FDA-Public Use
  Company Number: None

PATIENT
  Sex: Male

DRUGS (6)
  1. REVLIMID [Suspect]
     Indication: MULTIPLE MYELOMA
     Dosage: 25MG   DAILY 21D/28D   PO
     Route: 048
  2. WARFARIN SODIUM [Concomitant]
  3. PROCRIT [Concomitant]
  4. DEXAMETHASONE 0.5MG TAB [Concomitant]
  5. FENTANYL [Concomitant]
  6. PERCOCET [Concomitant]

REACTIONS (2)
  - OSTEONECROSIS [None]
  - TOOTH DISORDER [None]
